FAERS Safety Report 7338869-3 (Version None)
Quarter: 2011Q1

REPORT INFORMATION
  Report Type: 
  Country: None (occurrence: None)
  Receive Date: 20110308
  Receipt Date: 20110302
  Transmission Date: 20110831
  Serious: Yes (Death)
  Sender: FDA-Public Use
  Company Number: US-ASTRAZENECA-2010SE48601

PATIENT
  Age: 35 Year
  Sex: Male

DRUGS (3)
  1. PROZAC [Concomitant]
  2. SEROQUEL XR [Suspect]
     Indication: BIPOLAR DISORDER
     Route: 048
     Dates: start: 20080101
  3. RITALIN [Concomitant]

REACTIONS (1)
  - COMPLETED SUICIDE [None]
